FAERS Safety Report 5906074-0 (Version None)
Quarter: 2008Q4

REPORT INFORMATION
  Report Type: 
  Country: None (occurrence: None)
  Receive Date: 20081002
  Receipt Date: 20080923
  Transmission Date: 20090506
  Serious: Yes (Other)
  Sender: FDA-Public Use
  Company Number: PHHY2008US22302

PATIENT
  Sex: Female

DRUGS (3)
  1. LIORESAL [Suspect]
     Dosage: UNK
     Route: 037
  2. DILAUDID [Concomitant]
     Dosage: 8 MG/ML
  3. BACLOFEN [Concomitant]
     Route: 048

REACTIONS (7)
  - CHILLS [None]
  - DEVICE INEFFECTIVE [None]
  - DRUG WITHDRAWAL SYNDROME [None]
  - MUSCULOSKELETAL STIFFNESS [None]
  - PAIN [None]
  - PRURITUS [None]
  - PYREXIA [None]
